FAERS Safety Report 9518417 (Version 1)
Quarter: 2013Q3

REPORT INFORMATION
  Report Type: Spontaneous
  Country: US (occurrence: None)
  Receive Date: 20130910
  Receipt Date: 20130910
  Transmission Date: 20140515
  Serious: Yes (Other)
  Sender: FDA-Public Use
  Company Number: None

PATIENT
  Sex: Male

DRUGS (3)
  1. CLOPIDOGREL 75 MG [Suspect]
     Indication: ANGINA PECTORIS
     Dates: start: 2014
  2. CLOPIDOGREL 75 MG [Suspect]
     Indication: CORONARY ARTERY DISEASE
     Dates: start: 2014
  3. CLOPIDOGREL 75 MG [Suspect]
     Indication: CEREBROVASCULAR ACCIDENT
     Dates: start: 2014

REACTIONS (4)
  - Arthralgia [None]
  - Swelling [None]
  - Malaise [None]
  - Abdominal pain upper [None]
